FAERS Safety Report 15291407 (Version 1)
Quarter: 2018Q3

REPORT INFORMATION
  Report Type: Spontaneous
  Country: GB (occurrence: GB)
  Receive Date: 20180817
  Receipt Date: 20180817
  Transmission Date: 20181010
  Serious: Yes (Disabling, Other)
  Sender: FDA-Public Use
  Company Number: GB-PFIZER INC-2018328987

PATIENT
  Age: 52 Year
  Sex: Female
  Weight: 63.5 kg

DRUGS (1)
  1. CHAMPIX [Suspect]
     Active Substance: VARENICLINE TARTRATE
     Indication: SMOKING CESSATION THERAPY
     Dosage: UNK  (VARIED, UNSPECIFIED)
     Route: 048
     Dates: start: 20180618, end: 20180711

REACTIONS (10)
  - Insomnia [Recovering/Resolving]
  - Restless legs syndrome [Recovering/Resolving]
  - Nausea [Recovering/Resolving]
  - Eye irritation [Not Recovered/Not Resolved]
  - Paranoia [Not Recovered/Not Resolved]
  - Depressed mood [Not Recovered/Not Resolved]
  - Chest pain [Not Recovered/Not Resolved]
  - Agitation [Recovered/Resolved with Sequelae]
  - Depression suicidal [Not Recovered/Not Resolved]
  - Pain in jaw [Not Recovered/Not Resolved]

NARRATIVE: CASE EVENT DATE: 20180618
